FAERS Safety Report 5590528-3 (Version None)
Quarter: 2008Q1

REPORT INFORMATION
  Report Type: 
  Country: None (occurrence: None)
  Receive Date: 20080114
  Receipt Date: 20080110
  Transmission Date: 20080703
  Serious: Yes (Hospitalization)
  Sender: FDA-Public Use
  Company Number: US-BOEHRINGER INGELHEIM PHARMACEUTICALS, INC.-2007-BP-03464BP

PATIENT
  Sex: Female

DRUGS (11)
  1. SPIRIVA [Suspect]
     Indication: CHRONIC OBSTRUCTIVE PULMONARY DISEASE
     Route: 055
     Dates: start: 20041101
  2. SPIRIVA [Suspect]
     Indication: EMPHYSEMA
  3. ADVAIR DISKUS 100/50 [Concomitant]
     Indication: CHRONIC OBSTRUCTIVE PULMONARY DISEASE
     Route: 055
  4. ALBUTEROL [Concomitant]
     Indication: CHRONIC OBSTRUCTIVE PULMONARY DISEASE
  5. LISINOPRIL [Concomitant]
     Indication: BLOOD PRESSURE INCREASED
     Dates: start: 20060814
  6. BETAMETHASONE VALERATE [Concomitant]
     Route: 061
  7. CENTRUM SILVER A-Z [Concomitant]
  8. OSCAL 500-D [Concomitant]
  9. OXYGEN [Concomitant]
  10. FOSAMAX [Concomitant]
  11. PRO-AIR [Concomitant]

REACTIONS (2)
  - APPENDICITIS PERFORATED [None]
  - DRUG INEFFECTIVE [None]
